FAERS Safety Report 19495166 (Version 2)
Quarter: 2021Q3

REPORT INFORMATION
  Report Type: Spontaneous
  Country: DE (occurrence: DE)
  Receive Date: 20210706
  Receipt Date: 20210820
  Transmission Date: 20211014
  Serious: Yes (Hospitalization)
  Sender: FDA-Public Use
  Company Number: DE-TEVA-2021-DE-1928327

PATIENT
  Age: 72 Year
  Sex: Female
  Weight: 75 kg

DRUGS (6)
  1. METFORMIN [Concomitant]
     Active Substance: METFORMIN HYDROCHLORIDE
     Dosage: 2000 MILLIGRAM DAILY; 1?0?1?0,
     Route: 048
  2. IBUPROFEN. [Suspect]
     Active Substance: IBUPROFEN
     Dosage: 600 MG, MAX 3 PER DAY,
     Route: 048
  3. INSUMAN BASAL 100I.E./ML PATRONE [Concomitant]
     Dosage: ACCORDING TO BZ, INJECTION / INFUSION SOLUTION
     Route: 058
  4. PREGABALIN. [Concomitant]
     Active Substance: PREGABALIN
     Dosage: 50 MILLIGRAM DAILY; 1?0?0?0
     Route: 048
  5. CAPTOPRIL/HYDROCHLOROTHIAZID [Concomitant]
     Active Substance: CAPTOPRIL\HYDROCHLOROTHIAZIDE
     Dosage: 50 MILLIGRAM DAILY; 1?0?0?0,
     Route: 048
  6. METAMIZOL [Concomitant]
     Active Substance: METAMIZOLE SODIUM
     Dosage: 500 MG, UP TO FOUR TIMES 40 DROPS
     Route: 048

REACTIONS (3)
  - Product prescribing error [Unknown]
  - Musculoskeletal pain [Recovering/Resolving]
  - Peripheral coldness [Recovering/Resolving]
